FAERS Safety Report 14602350 (Version 6)
Quarter: 2018Q2

REPORT INFORMATION
  Report Type: Spontaneous
  Country: GB (occurrence: GB)
  Receive Date: 20180306
  Receipt Date: 20180524
  Transmission Date: 20180711
  Serious: Yes (Hospitalization, Other)
  Sender: FDA-Public Use
  Company Number: GB-MERCK KGAA-2043024

PATIENT
  Age: 86 Year
  Sex: Female

DRUGS (15)
  1. NOVOTHYROX [Suspect]
     Active Substance: LEVOTHYROXINE SODIUM
     Indication: PRODUCT USED FOR UNKNOWN INDICATION
  2. CANDESARTAN. [Suspect]
     Active Substance: CANDESARTAN
  3. APIXABAN [Suspect]
     Active Substance: APIXABAN
     Dates: end: 20180207
  4. BISOPROLOL FUMARATE. [Suspect]
     Active Substance: BISOPROLOL FUMARATE
     Dates: end: 20180207
  5. CANDESARTAN CILEXETIL. [Suspect]
     Active Substance: CANDESARTAN CILEXETIL
  6. DIGOXIN. [Suspect]
     Active Substance: DIGOXIN
  7. LINAGLIPTIN [Suspect]
     Active Substance: LINAGLIPTIN
  8. SIMVASTATIN. [Suspect]
     Active Substance: SIMVASTATIN
  9. ISOSORBIDE. [Suspect]
     Active Substance: ISOSORBIDE
  10. LEVOTHYROXINE SODIUM. [Suspect]
     Active Substance: LEVOTHYROXINE SODIUM
  11. CETIRIZINE DIHYDROCHLORIDE [Suspect]
     Active Substance: CETIRIZINE HYDROCHLORIDE
  12. BISOPROLOL FUMARATE. [Suspect]
     Active Substance: BISOPROLOL FUMARATE
     Dates: end: 20180207
  13. APIXABAN [Suspect]
     Active Substance: APIXABAN
     Dates: start: 20180207
  14. LEVOTHYROXINE SODIUM. [Suspect]
     Active Substance: LEVOTHYROXINE SODIUM
  15. LANSOPRAZOLE. [Suspect]
     Active Substance: LANSOPRAZOLE

REACTIONS (2)
  - Off label use [Unknown]
  - Subarachnoid haemorrhage [Recovered/Resolved with Sequelae]
